FAERS Safety Report 16563443 (Version 1)
Quarter: 2019Q3

REPORT INFORMATION
  Report Type: Spontaneous
  Country: US (occurrence: US)
  Receive Date: 20190712
  Receipt Date: 20190712
  Transmission Date: 20191004
  Serious: No
  Sender: FDA-Public Use
  Company Number: US-009507513-1907USA003823

PATIENT
  Sex: Female

DRUGS (2)
  1. TEMODAR [Suspect]
     Active Substance: TEMOZOLOMIDE
     Indication: BRAIN NEOPLASM MALIGNANT
     Dosage: 5 MILLIGRAM, BID (2 BY MOUTH EVERYDAY ALONG WITH 140MG TABLET (TOTAL 150 MG BY MOUTH DAILY)
     Route: 048
     Dates: start: 201906
  2. TEMODAR [Suspect]
     Active Substance: TEMOZOLOMIDE
     Dosage: 140 MILLIGRAM, QD (2 BY MOUTH EVERYDAY ALONG WITH 140MG TABLET (TOTAL 150 MG BY MOUTH DAILY))
     Route: 048
     Dates: start: 201906

REACTIONS (1)
  - Adverse drug reaction [Unknown]

NARRATIVE: CASE EVENT DATE: 2019
